FAERS Safety Report 23321294 (Version 1)
Quarter: 2023Q4

REPORT INFORMATION
  Report Type: Spontaneous
  Country: CN (occurrence: CN)
  Receive Date: 20231220
  Receipt Date: 20231220
  Transmission Date: 20240109
  Serious: Yes (Hospitalization, Disabling)
  Sender: FDA-Public Use
  Company Number: CN-ELI_LILLY_AND_COMPANY-CN202312008952

PATIENT
  Age: 28 Year
  Sex: Female
  Weight: 61.2 kg

DRUGS (5)
  1. ABEMACICLIB [Suspect]
     Active Substance: ABEMACICLIB
     Indication: Invasive ductal breast carcinoma
     Dosage: 0.15 G, BID
     Route: 048
     Dates: start: 20231116, end: 20231203
  2. EXEMESTANE [Suspect]
     Active Substance: EXEMESTANE
     Indication: Invasive ductal breast carcinoma
     Dosage: 25 MG, DAILY
     Route: 048
     Dates: start: 20230609, end: 20231211
  3. ZOLEDRONIC ACID [Concomitant]
     Active Substance: ZOLEDRONIC ACID
     Indication: Bone cancer
     Dosage: 4 MG, DAILY
     Route: 041
     Dates: start: 20231117, end: 20231117
  4. LEUPROLIDE ACETATE [Concomitant]
     Active Substance: LEUPROLIDE ACETATE
     Indication: Invasive ductal breast carcinoma
     Dosage: 3.75 MG, DAILY
     Route: 058
     Dates: start: 202306
  5. LEUPROLIDE ACETATE [Concomitant]
     Active Substance: LEUPROLIDE ACETATE
     Dosage: 3.75 MG, DAILY
     Route: 058
     Dates: start: 20231117, end: 20231117

REACTIONS (1)
  - Myelosuppression [Not Recovered/Not Resolved]

NARRATIVE: CASE EVENT DATE: 20231204
